FAERS Safety Report 11093554 (Version 3)
Quarter: 2015Q3

REPORT INFORMATION
  Report Type: Spontaneous
  Country: US (occurrence: US)
  Receive Date: 20150506
  Receipt Date: 20150710
  Transmission Date: 20151125
  Serious: Yes (Other)
  Sender: FDA-Public Use
  Company Number: US-ASTRAZENECA-2015SE41729

PATIENT
  Age: 65 Year
  Sex: Female
  Weight: 73 kg

DRUGS (13)
  1. TAMOXIFEN [Suspect]
     Active Substance: TAMOXIFEN
     Route: 048
  2. VITAMIN C [Concomitant]
     Active Substance: ASCORBIC ACID
  3. OSCAL [Concomitant]
     Active Substance: CALCIUM CARBONATE
     Dosage: 250-125 MG-UNIT PER TABLET
  4. MULTIVITAMINS [Concomitant]
     Active Substance: VITAMINS
  5. IBRANCE [Concomitant]
     Active Substance: PALBOCICLIB
     Dosage: TAKE ONE TABLET DAILY 3 WEEKS ON 1 WEEK OFF
  6. FASLODEX [Suspect]
     Active Substance: FULVESTRANT
     Route: 030
     Dates: end: 201401
  7. DILTIAZEM HCL [Concomitant]
     Active Substance: DILTIAZEM HYDROCHLORIDE
     Route: 048
  8. NEURONTIN [Concomitant]
     Active Substance: GABAPENTIN
  9. FEMARA [Suspect]
     Active Substance: LETROZOLE
     Route: 065
  10. ATIVAN [Concomitant]
     Active Substance: LORAZEPAM
  11. OMEPRAZOLE. [Concomitant]
     Active Substance: OMEPRAZOLE
  12. XGEVA [Concomitant]
     Active Substance: DENOSUMAB
     Route: 058
     Dates: start: 20150407
  13. XELODA [Concomitant]
     Active Substance: CAPECITABINE
     Dates: end: 201402

REACTIONS (12)
  - Metastases to bone [Unknown]
  - Drug intolerance [Unknown]
  - Lumbar spinal stenosis [Unknown]
  - Muscle mass [Unknown]
  - Osteopenia [Unknown]
  - Arthritis [Unknown]
  - Osteoarthritis [Unknown]
  - Pathological fracture [Unknown]
  - Malignant neoplasm progression [Unknown]
  - Arrhythmia [Unknown]
  - Gastrooesophageal reflux disease [Unknown]
  - Spinal osteoarthritis [Unknown]
